FAERS Safety Report 5411608-9 (Version None)
Quarter: 2007Q3

REPORT INFORMATION
  Report Type: 
  Country: None (occurrence: None)
  Receive Date: 20070810
  Receipt Date: 20070731
  Transmission Date: 20080115
  Serious: Yes (Other)
  Sender: FDA-Public Use
  Company Number: GB-PFIZER INC-2007063770

PATIENT

DRUGS (2)
  1. VFEND [Suspect]
  2. VINCRISTINE [Concomitant]

REACTIONS (1)
  - NEUROTOXICITY [None]
